FAERS Safety Report 13571677 (Version 1)
Quarter: 2017Q2

REPORT INFORMATION
  Report Type: Spontaneous
  Country: US (occurrence: US)
  Receive Date: 20170523
  Receipt Date: 20170523
  Transmission Date: 20170830
  Serious: Yes (Life-Threatening, Hospitalization)
  Sender: FDA-Public Use
  Company Number: None

PATIENT
  Age: 66 Year
  Sex: Male

DRUGS (1)
  1. SUGAMMADEX [Suspect]
     Active Substance: SUGAMMADEX
     Indication: ROTATOR CUFF REPAIR
     Route: 042
     Dates: start: 20170511, end: 20170511

REACTIONS (3)
  - Anaphylactic reaction [None]
  - Hypoxia [None]
  - Respiratory depression [None]

NARRATIVE: CASE EVENT DATE: 20170511
